FAERS Safety Report 7710533-8 (Version None)
Quarter: 2011Q3

REPORT INFORMATION
  Report Type: 
  Country: None (occurrence: None)
  Receive Date: 20110825
  Receipt Date: 20110819
  Transmission Date: 20111222
  Serious: Yes (Other)
  Sender: FDA-Public Use
  Company Number: US-BAYER-2011-036475

PATIENT
  Age: 37 Year
  Sex: Female
  Weight: 99.773 kg

DRUGS (1)
  1. MIRENA [Suspect]
     Indication: CONTRACEPTION
     Dosage: 20 MCG/24HR, CONT
     Route: 015
     Dates: start: 20060201, end: 20110424

REACTIONS (4)
  - UTERINE LEIOMYOMA [None]
  - COMPLICATION OF DEVICE REMOVAL [None]
  - UTERINE MALPOSITION [None]
  - DEVICE DIFFICULT TO USE [None]
